FAERS Safety Report 12502499 (Version 1)
Quarter: 2016Q2

REPORT INFORMATION
  Report Type: Report from Study
  Country: US (occurrence: US)
  Receive Date: 20160627
  Receipt Date: 20160627
  Transmission Date: 20160815
  Serious: No
  Sender: FDA-Public Use
  Company Number: US-AMGEN-USASL2016081328

PATIENT
  Age: 76 Year
  Sex: Male

DRUGS (2)
  1. ENBREL [Suspect]
     Active Substance: ETANERCEPT
     Indication: PSORIASIS
     Dosage: UNK
     Route: 065
  2. METHOTREXATE [Suspect]
     Active Substance: METHOTREXATE
     Indication: PRODUCT USED FOR UNKNOWN INDICATION
     Dosage: UNK
     Route: 065

REACTIONS (8)
  - Pancreatic enlargement [Unknown]
  - Sinus disorder [Unknown]
  - Psoriasis [Unknown]
  - Cough [Recovered/Resolved]
  - Peripheral swelling [Unknown]
  - Musculoskeletal stiffness [Unknown]
  - Hepatomegaly [Unknown]
  - Ear discomfort [Unknown]
